FAERS Safety Report 15729760 (Version 1)
Quarter: 2018Q4

REPORT INFORMATION
  Report Type: Spontaneous
  Country: GB (occurrence: GB)
  Receive Date: 20181217
  Receipt Date: 20181217
  Transmission Date: 20190205
  Serious: No
  Sender: FDA-Public Use
  Company Number: GB-ALKEM LABORATORIES LIMITED-GB-ALKEM-2018-07597

PATIENT
  Sex: Male

DRUGS (2)
  1. METFORMIN HYDROCHLORIDE. [Suspect]
     Active Substance: METFORMIN HYDROCHLORIDE
     Indication: PRODUCT USED FOR UNKNOWN INDICATION
     Dosage: 850 MG, ONE DOSE
     Route: 048
  2. MIROGABALIN [Suspect]
     Active Substance: MIROGABALIN
     Indication: PRODUCT USED FOR UNKNOWN INDICATION
     Dosage: 15 MG, ONE DOSE
     Route: 048

REACTIONS (1)
  - Dyspepsia [Unknown]
